FAERS Safety Report 6299264-1 (Version None)
Quarter: 2009Q3

REPORT INFORMATION
  Report Type: 
  Country: None (occurrence: None)
  Receive Date: 20090803
  Receipt Date: 20090715
  Transmission Date: 20100115
  Serious: Yes (Other)
  Sender: FDA-Public Use
  Company Number: 2008AL008844

PATIENT
  Age: 75 Year
  Sex: Female

DRUGS (5)
  1. DIGOXIN [Suspect]
     Indication: ARRHYTHMIA
     Dosage: PO
     Route: 048
  2. COREG [Concomitant]
  3. LASIX [Concomitant]
  4. MICRO-K [Concomitant]
  5. LEXAPRO [Concomitant]

REACTIONS (21)
  - ABDOMINAL PAIN [None]
  - ANHEDONIA [None]
  - ANXIETY [None]
  - BACK PAIN [None]
  - CHEST DISCOMFORT [None]
  - COLOUR BLINDNESS [None]
  - DIARRHOEA [None]
  - DIZZINESS [None]
  - DYSPNOEA [None]
  - FALL [None]
  - FEELING HOT [None]
  - HALO VISION [None]
  - HEART RATE IRREGULAR [None]
  - HYPERHIDROSIS [None]
  - HYPOTENSION [None]
  - ILL-DEFINED DISORDER [None]
  - IRRITABILITY [None]
  - LOSS OF CONSCIOUSNESS [None]
  - MULTIPLE INJURIES [None]
  - PAIN [None]
  - PALPITATIONS [None]
